FAERS Safety Report 6674008-X (Version None)
Quarter: 2010Q2

REPORT INFORMATION
  Report Type: 
  Country: None (occurrence: None)
  Receive Date: 20100409
  Receipt Date: 20100330
  Transmission Date: 20101027
  Serious: Yes (Other)
  Sender: FDA-Public Use
  Company Number: FR-JNJFOC-20100400100

PATIENT
  Age: 84 Year
  Sex: Female

DRUGS (2)
  1. DURAGESIC-100 [Suspect]
     Indication: ARTHRALGIA
     Route: 062
  2. ULTRACET [Interacting]
     Indication: ARTHRALGIA
     Route: 048

REACTIONS (2)
  - DRUG INTERACTION [None]
  - HALLUCINATION [None]
